FAERS Safety Report 7178253-9 (Version None)
Quarter: 2010Q4

REPORT INFORMATION
  Report Type: 
  Country: None (occurrence: None)
  Receive Date: 20101220
  Receipt Date: 20101208
  Transmission Date: 20110411
  Serious: Yes (Other)
  Sender: FDA-Public Use
  Company Number: US-ROCHE-727344

PATIENT
  Sex: Male
  Weight: 83.9 kg

DRUGS (1)
  1. ACCUTANE [Suspect]
     Route: 065
     Dates: start: 19990501, end: 19991001

REACTIONS (3)
  - COLITIS ULCERATIVE [None]
  - GASTROINTESTINAL INJURY [None]
  - OESOPHAGEAL STENOSIS [None]
